FAERS Safety Report 14245176 (Version 1)
Quarter: 2017Q4

REPORT INFORMATION
  Report Type: Spontaneous
  Country: JP (occurrence: JP)
  Receive Date: 20171202
  Receipt Date: 20171202
  Transmission Date: 20180321
  Serious: Yes (Other)
  Sender: FDA-Public Use
  Company Number: JP-SUN PHARMACEUTICAL INDUSTRIES LTD-2017R3-147825

PATIENT
  Sex: Female

DRUGS (2)
  1. TEGRETOL [Suspect]
     Active Substance: CARBAMAZEPINE
     Indication: GLOSSOPHARYNGEAL NEURALGIA
     Route: 048
  2. LIORESAL [Suspect]
     Active Substance: BACLOFEN
     Indication: GLOSSOPHARYNGEAL NEURALGIA
     Route: 048

REACTIONS (3)
  - Drug eruption [Recovered/Resolved]
  - Pruritus [Recovered/Resolved]
  - Drug effect incomplete [Unknown]
